FAERS Safety Report 7829538-1 (Version None)
Quarter: 2011Q4

REPORT INFORMATION
  Report Type: 
  Country: None (occurrence: None)
  Receive Date: 20111020
  Receipt Date: 20111013
  Transmission Date: 20120403
  Serious: Yes (Hospitalization, Other)
  Sender: FDA-Public Use
  Company Number: US-MERCK-1104USA03723

PATIENT
  Age: 76 Year
  Sex: Female
  Weight: 54 kg

DRUGS (9)
  1. DITROPAN [Concomitant]
     Indication: URINARY INCONTINENCE
     Route: 065
  2. FOSAMAX [Suspect]
     Indication: OSTEOPENIA
     Route: 048
     Dates: start: 20080425, end: 20080701
  3. ALENDRONATE SODIUM [Suspect]
     Route: 048
     Dates: start: 20091201
  4. LOTENSION (BENAZEPRIL HYDROCHLORIDE) [Concomitant]
     Route: 065
  5. PREMARIN [Concomitant]
     Route: 065
  6. FOSAMAX PLUS D [Suspect]
     Indication: OSTEOPENIA
     Route: 048
     Dates: start: 20051201, end: 20070901
  7. FOSAMAX [Suspect]
     Route: 048
     Dates: end: 20080214
  8. ALENDRONATE SODIUM [Suspect]
     Indication: OSTEOPENIA
     Route: 048
     Dates: start: 20081010, end: 20090611
  9. FOSAMAX [Suspect]
     Indication: OSTEOPOROSIS
     Route: 048
     Dates: start: 20020308, end: 20050901

REACTIONS (9)
  - FEMUR FRACTURE [None]
  - HYPERCHOLESTEROLAEMIA [None]
  - AUTOMATIC BLADDER [None]
  - ARTHRITIS [None]
  - HYPERSENSITIVITY [None]
  - OVARIAN DISORDER [None]
  - DRUG HYPERSENSITIVITY [None]
  - HYPERTENSION [None]
  - HYSTERECTOMY [None]
